FAERS Safety Report 19455469 (Version 3)
Quarter: 2021Q4

REPORT INFORMATION
  Report Type: Report from Study
  Country: DE (occurrence: DE)
  Receive Date: 20210623
  Receipt Date: 20211209
  Transmission Date: 20220304
  Serious: Yes (Other)
  Sender: FDA-Public Use
  Company Number: DE-JNJFOC-20210626041

PATIENT
  Sex: Female

DRUGS (7)
  1. SIMPONI [Suspect]
     Active Substance: GOLIMUMAB
     Indication: Axial spondyloarthritis
     Route: 058
     Dates: start: 20171102, end: 20181023
  2. CIMZIA [Suspect]
     Active Substance: CERTOLIZUMAB PEGOL
     Indication: Axial spondyloarthritis
     Route: 065
     Dates: start: 20181106
  3. SULFASALAZINE [Suspect]
     Active Substance: SULFASALAZINE
     Indication: Product used for unknown indication
     Route: 065
     Dates: start: 20180928, end: 20181106
  4. CELECOXIB [Concomitant]
     Active Substance: CELECOXIB
     Dates: start: 20180313, end: 20180709
  5. CELECOXIB [Concomitant]
     Active Substance: CELECOXIB
     Dates: start: 20201124, end: 20210526
  6. IBUPROFEN [Concomitant]
     Active Substance: IBUPROFEN
     Dates: start: 20180515, end: 20180630
  7. IBUPROFEN [Concomitant]
     Active Substance: IBUPROFEN
     Dates: start: 20190715, end: 20200520

REACTIONS (3)
  - SAPHO syndrome [Unknown]
  - Maternal exposure during pregnancy [Recovered/Resolved]
  - Rotator cuff syndrome [Unknown]

NARRATIVE: CASE EVENT DATE: 20180901
